FAERS Safety Report 17821608 (Version 3)
Quarter: 2020Q2

REPORT INFORMATION
  Report Type: Spontaneous
  Country: JP (occurrence: JP)
  Receive Date: 20200525
  Receipt Date: 20200603
  Transmission Date: 20200714
  Serious: Yes (Hospitalization)
  Sender: FDA-Public Use
  Company Number: JP-CELGENEUS-JPN-20200506748

PATIENT
  Age: 89 Year
  Sex: Male

DRUGS (1)
  1. REVLIMID [Suspect]
     Active Substance: LENALIDOMIDE
     Indication: 5Q MINUS SYNDROME
     Dosage: UNKNOWN
     Route: 048

REACTIONS (4)
  - Urinary incontinence [Unknown]
  - Altered state of consciousness [Unknown]
  - Dyspnoea [Unknown]
  - Movement disorder [Unknown]

NARRATIVE: CASE EVENT DATE: 20200520
